FAERS Safety Report 20717742 (Version 1)
Quarter: 2022Q2

REPORT INFORMATION
  Report Type: Report from Study
  Country: US (occurrence: US)
  Receive Date: 20220417
  Receipt Date: 20220417
  Transmission Date: 20220720
  Serious: Yes (Other)
  Sender: FDA-Public Use
  Company Number: US-BRISTOL-MYERS SQUIBB COMPANY-2022-017319

PATIENT
  Age: 67 Year
  Sex: Male

DRUGS (1)
  1. ELIQUIS [Suspect]
     Active Substance: APIXABAN
     Indication: Cerebrovascular accident prophylaxis
     Dosage: DOSE : UNAVAILABLE;     FREQ : TWICE DAILY
     Route: 065
     Dates: start: 2022

REACTIONS (7)
  - Urinary tract infection [Unknown]
  - Cardiac disorder [Unknown]
  - Dehydration [Unknown]
  - Thirst decreased [Unknown]
  - Renal disorder [Unknown]
  - Blood glucose decreased [Unknown]
  - Blood urine present [Unknown]

NARRATIVE: CASE EVENT DATE: 20220101
